FAERS Safety Report 16316888 (Version 1)
Quarter: 2019Q2

REPORT INFORMATION
  Report Type: Spontaneous
  Country: US (occurrence: US)
  Receive Date: 20190515
  Receipt Date: 20190515
  Transmission Date: 20190711
  Serious: No
  Sender: FDA-Public Use
  Company Number: US-JNJFOC-20190442629

PATIENT
  Sex: Female

DRUGS (2)
  1. TRANEX [Concomitant]
     Active Substance: TRANEXAMIC ACID
     Indication: HEREDITARY HAEMORRHAGIC TELANGIECTASIA
     Route: 065
  2. TYLENOL REGULAR STRENGTH [Suspect]
     Active Substance: ACETAMINOPHEN
     Indication: PRODUCT USED FOR UNKNOWN INDICATION
     Dosage: ONLY TAKE ONE CAPLET PER DOSE
     Route: 048

REACTIONS (1)
  - Incorrect dose administered [Unknown]
